FAERS Safety Report 5315100-1 (Version None)
Quarter: 2007Q2

REPORT INFORMATION
  Report Type: 
  Country: None (occurrence: None)
  Receive Date: 20070502
  Receipt Date: 20070430
  Transmission Date: 20071010
  Serious: Yes (Hospitalization)
  Sender: FDA-Public Use
  Company Number: US-BOEHRINGER INGELHEIM PHARMACEUTICALS, INC.-2007-BP-05910BP

PATIENT
  Sex: Male

DRUGS (4)
  1. SPIRIVA [Suspect]
     Indication: CHRONIC OBSTRUCTIVE PULMONARY DISEASE
     Route: 055
     Dates: start: 20060101
  2. CYMBALTA [Concomitant]
     Indication: DEPRESSION
  3. UNSPECIFIED HTN MEDICATION [Concomitant]
     Indication: HYPERTENSION
  4. CLARITIN [Concomitant]

REACTIONS (2)
  - DYSPNOEA [None]
  - THROMBOSIS [None]
